FAERS Safety Report 6784303-1 (Version None)
Quarter: 2010Q2

REPORT INFORMATION
  Report Type: 
  Country: None (occurrence: None)
  Receive Date: 20100622
  Receipt Date: 20100618
  Transmission Date: 20101027
  Serious: Yes (Hospitalization)
  Sender: FDA-Public Use
  Company Number: GXKR2010DE06697

PATIENT
  Age: 77 Year
  Sex: Female

DRUGS (7)
  1. ACETYLSALICYLIC ACID SRT [Suspect]
     Dosage: 100 MG, QD
     Route: 048
  2. PLAVIX [Interacting]
     Dosage: 75 MG, QD
     Route: 048
  3. CIPRALEX                                /DEN/ [Interacting]
     Dosage: 30 MG, QD
     Dates: start: 20081101, end: 20081105
  4. REMERGIL [Concomitant]
  5. FRAGMIN [Concomitant]
  6. SIMVASTATIN [Concomitant]
  7. METOPROLOL TARTRATE [Concomitant]

REACTIONS (2)
  - DRUG INTERACTION [None]
  - EPISTAXIS [None]
